FAERS Safety Report 11772895 (Version 1)
Quarter: 2015Q4

REPORT INFORMATION
  Report Type: Spontaneous
  Country: US (occurrence: None)
  Receive Date: 20151123
  Receipt Date: 20151123
  Transmission Date: 20160304
  Serious: Yes (Hospitalization)
  Sender: FDA-Public Use
  Company Number: None

PATIENT
  Age: 53 Year
  Sex: Male
  Weight: 87.6 kg

DRUGS (1)
  1. ZOLEDRONIC [Suspect]
     Active Substance: ZOLEDRONIC ACID
     Indication: OSTEOPOROSIS
     Route: 042
     Dates: start: 20151005, end: 20151005

REACTIONS (15)
  - Dizziness [None]
  - Skin exfoliation [None]
  - Nausea [None]
  - Tachycardia [None]
  - Dyspnoea [None]
  - Hypophagia [None]
  - Abdominal pain [None]
  - Peripheral swelling [None]
  - Paraesthesia [None]
  - Asthenia [None]
  - Inflammation [None]
  - Angina pectoris [None]
  - Chills [None]
  - Pyrexia [None]
  - Erythema multiforme [None]

NARRATIVE: CASE EVENT DATE: 20151006
